FAERS Safety Report 24293616 (Version 1)
Quarter: 2024Q3

REPORT INFORMATION
  Report Type: Spontaneous
  Country: US (occurrence: None)
  Receive Date: 20240906
  Receipt Date: 20240906
  Transmission Date: 20241017
  Serious: No
  Sender: DOMPE FARMACEUTICI
  Company Number: US-FARMAPROD-202308-202402-0468

PATIENT
  Age: 70 Year
  Sex: Female
  Weight: 54.79 kg

DRUGS (26)
  1. OXERVATE [Suspect]
     Active Substance: CENEGERMIN-BKBJ
     Indication: Neurotrophic keratopathy
     Route: 047
     Dates: start: 20240207, end: 20240209
  2. AMLODIPINE BESYLATE [Concomitant]
     Active Substance: AMLODIPINE BESYLATE
  3. FIASP [Concomitant]
     Active Substance: INSULIN ASPART
     Dosage: INSULIN PEN
  4. HYOSCYAMINE SULFATE [Concomitant]
     Active Substance: HYOSCYAMINE SULFATE
  5. RHOPRESSA [Concomitant]
     Active Substance: NETARSUDIL MESYLATE
  6. DORZOLAMIDE HYDROCHLORIDE [Concomitant]
     Active Substance: DORZOLAMIDE HYDROCHLORIDE
  7. INSULIN LISPRO [Concomitant]
     Active Substance: INSULIN LISPRO
     Dosage: VIAL
  8. BUPROPION [Concomitant]
     Active Substance: BUPROPION
     Dosage: EXTENDED RELEASE FOR 24 HOURS
  9. HYDROCHLOROTHIAZIDE [Concomitant]
     Active Substance: HYDROCHLOROTHIAZIDE
  10. PRAMIPEXOLE DIHYDROCHLORIDE [Concomitant]
     Active Substance: PRAMIPEXOLE DIHYDROCHLORIDE
  11. LOSARTAN POTASSIUM [Concomitant]
     Active Substance: LOSARTAN POTASSIUM
  12. ONDANSETRON [Concomitant]
     Active Substance: ONDANSETRON
     Dosage: ORALLY DISINTEGRATING
  13. BOTOX [Concomitant]
     Active Substance: ONABOTULINUMTOXINA
     Dosage: VIAL
  14. ROSUVASTATIN CALCIUM [Concomitant]
     Active Substance: ROSUVASTATIN CALCIUM
  15. RABEPRAZOLE SODIUM [Concomitant]
     Active Substance: RABEPRAZOLE SODIUM
  16. MIRAPEX [Concomitant]
     Active Substance: PRAMIPEXOLE DIHYDROCHLORIDE
     Dosage: EXTENDED RELEASE FOR 24 HOURS
  17. NORVASC [Concomitant]
     Active Substance: AMLODIPINE BESYLATE
  18. CRESTOR [Concomitant]
     Active Substance: ROSUVASTATIN CALCIUM
  19. HYDROCHLOROTHIAZIDE [Concomitant]
     Active Substance: HYDROCHLOROTHIAZIDE
  20. XIIDRA [Concomitant]
     Active Substance: LIFITEGRAST
     Dosage: DROPERETTE
  21. SYSTANE GEL [Concomitant]
  22. UNSPECIFIED INGREDIENT [Concomitant]
     Active Substance: UNSPECIFIED INGREDIENT
  23. REFRESH TEARS [Concomitant]
     Active Substance: CARBOXYMETHYLCELLULOSE SODIUM
  24. CRANBERRY [Concomitant]
     Active Substance: CRANBERRY
  25. ACIPHEX [Concomitant]
     Active Substance: RABEPRAZOLE SODIUM
  26. WELLBUTRIN XL [Concomitant]
     Active Substance: BUPROPION HYDROCHLORIDE
     Dosage: EXTENDED RELEASE FOR 24 HOURS

REACTIONS (6)
  - Vision blurred [Unknown]
  - Eye pain [Unknown]
  - Facial pain [Unknown]
  - Photophobia [Unknown]
  - Sinus pain [Unknown]
  - Gait disturbance [Unknown]

NARRATIVE: CASE EVENT DATE: 20240201
